FAERS Safety Report 10369238 (Version 1)
Quarter: 2014Q1

REPORT INFORMATION
  Report Type: Spontaneous
  Country: US (occurrence: None)
  Receive Date: 20140306
  Receipt Date: 20140306
  Transmission Date: 20141002
  Serious: Yes (Hospitalization)
  Sender: FDA-Public Use
  Company Number: 163-21880-13022217

PATIENT
  Age: 64 Year
  Sex: Male

DRUGS (11)
  1. REVLIMID (LENALIDOMIDE) (CAPSULES) [Suspect]
     Indication: PLASMA CELL MYELOMA
     Dosage: 25 MG, 21 IN 28 D, PO
     Route: 048
     Dates: start: 20130117
  2. LEVOTHYROXIN (LEVOTHYROXINE SODIUM) (UNKNOWN) [Concomitant]
  3. METFORMIN (UNKNOWN) [Concomitant]
  4. CRESTOR (ROSUVASTATIN) (UNKNOWN) [Concomitant]
  5. DEXAMETHASONE (UNKNOWN) [Concomitant]
  6. COUMADIN (WARFARIN SODIUM) (UNKNOWN) [Concomitant]
  7. PANTOPRAZOLE (UNKNOWN) [Concomitant]
  8. DIAVAN (UNKNOWN) [Concomitant]
  9. LANTUS (INSULIN GLARGINE) (UNKNOWN) [Concomitant]
  10. MULTIVITAMINS (UNKNOWN) [Concomitant]
  11. ASPIRIN LOW (ACETYLSALICYLIC ACID) (UNKNOWN) [Concomitant]

REACTIONS (1)
  - Pulmonary embolism [None]
